FAERS Safety Report 18944801 (Version 1)
Quarter: 2021Q1

REPORT INFORMATION
  Report Type: Not Available
  Country: AD (occurrence: None)
  Receive Date: 20210226
  Receipt Date: 20210226
  Transmission Date: 20210420
  Serious: No
  Sender: FDA-Public Use
  Company Number: US-AKORN-160488

PATIENT
  Sex: Male

DRUGS (1)
  1. LACTULOSE. [Suspect]
     Active Substance: LACTULOSE

REACTIONS (1)
  - Illness [Unknown]
